FAERS Safety Report 6456413-X (Version None)
Quarter: 2009Q4

REPORT INFORMATION
  Report Type: 
  Country: None (occurrence: None)
  Receive Date: 20091124
  Receipt Date: 20091124
  Transmission Date: 20100525
  Serious: Yes (Other)
  Sender: FDA-Public Use
  Company Number: None

PATIENT
  Age: 47 Year
  Sex: Male
  Weight: 99.7913 kg

DRUGS (1)
  1. SIMPLY SALINE NASAL MIST COLD FO N/A BLAIREX LABORATORIES, INC. [Suspect]
     Indication: NASAL CONGESTION
     Dosage: 1 APPLICATIONS 1 MIN INTERVALS NASAL
     Route: 045
     Dates: start: 20091122, end: 20091122

REACTIONS (1)
  - HYPOAESTHESIA [None]
